FAERS Safety Report 18257010 (Version 1)
Quarter: 2020Q3

REPORT INFORMATION
  Report Type: Spontaneous
  Country: ES (occurrence: ES)
  Receive Date: 20200911
  Receipt Date: 20200911
  Transmission Date: 20201103
  Serious: Yes (Death, Hospitalization)
  Sender: FDA-Public Use
  Company Number: ES-PFIZER INC-2020340167

PATIENT
  Age: 50 Year
  Sex: Female

DRUGS (4)
  1. PHENYLETHYLBARBITURIC ACID [Concomitant]
     Dosage: 50 MG (TABLET) (VARIABLE DOSES OF 3?4 TABLETS DAILY)
     Route: 048
     Dates: start: 1975
  2. PHENYLETHYLBARBITURIC ACID [Concomitant]
     Indication: SEIZURE
     Dosage: 150 MG, DAILY
  3. PHENYTOIN SODIUM. [Suspect]
     Active Substance: PHENYTOIN SODIUM
     Dosage: 50 MG, DAILY (TABLET)
     Route: 048
     Dates: start: 1975
  4. PHENYTOIN SODIUM. [Suspect]
     Active Substance: PHENYTOIN SODIUM
     Indication: SEIZURE
     Dosage: 300 MG, DAILY (DISCONTINOUSLY)

REACTIONS (11)
  - Mesenteric artery thrombosis [Fatal]
  - Lung disorder [Fatal]
  - Shock [Fatal]
  - Demyelination [Fatal]
  - Neuropathy peripheral [Fatal]
  - Interstitial lung disease [Fatal]
  - Vasculitis [Fatal]
  - Multiple organ dysfunction syndrome [Fatal]
  - Gastrointestinal necrosis [Fatal]
  - Lymphocytic infiltration [Fatal]
  - Cardiac septal defect [Fatal]
